FAERS Safety Report 6932414-X (Version None)
Quarter: 2010Q3

REPORT INFORMATION
  Report Type: 
  Country: None (occurrence: None)
  Receive Date: 20100817
  Receipt Date: 20100802
  Transmission Date: 20110219
  Serious: Yes (Hospitalization)
  Sender: FDA-Public Use
  Company Number: AUR-APL-2010-01972

PATIENT
  Age: 74 Year
  Sex: Female

DRUGS (5)
  1. CARVEDILOL [Suspect]
  2. CITALOPRAM HYDROBROMIDE [Suspect]
  3. ZOFRAN [Suspect]
     Indication: NAUSEA
     Dosage: 4MG, IV
     Route: 042
  4. AMIODARONE HCL [Suspect]
     Indication: VENTRICULAR TACHYCARDIA
  5. FENTANYL CITRATE [Suspect]
     Indication: PAIN
     Dosage: 25?G/H, QH, TRANSDERMAL, 3 DAYS PRIOR TO ER
     Route: 062

REACTIONS (9)
  - ANXIETY [None]
  - ATRIOVENTRICULAR BLOCK FIRST DEGREE [None]
  - ELECTROCARDIOGRAM QT PROLONGED [None]
  - HYPOKALAEMIA [None]
  - HYPOMAGNESAEMIA [None]
  - NAUSEA [None]
  - PAIN [None]
  - SINUS BRADYCARDIA [None]
  - VENTRICULAR TACHYCARDIA [None]
